FAERS Safety Report 5087146-2 (Version None)
Quarter: 2006Q3

REPORT INFORMATION
  Report Type: 
  Country: None (occurrence: None)
  Receive Date: 20060821
  Receipt Date: 20060814
  Transmission Date: 20061208
  Serious: Yes (Disabling, Other)
  Sender: FDA-Public Use
  Company Number: GB-2006-023283

PATIENT
  Age: 38 Year
  Sex: Female
  Weight: 65 kg

DRUGS (2)
  1. MIRENA [Suspect]
     Indication: CONTRACEPTION
     Dosage: 20 UG/DAY, CONT, INTRA-UTERINE
     Route: 015
     Dates: start: 20060322, end: 20060614
  2. CEPHALEXIN [Concomitant]

REACTIONS (3)
  - ANXIETY [None]
  - EMOTIONAL DISTRESS [None]
  - NEGATIVE THOUGHTS [None]
